FAERS Safety Report 18606203 (Version 3)
Quarter: 2021Q2

REPORT INFORMATION
  Report Type: Spontaneous
  Country: CZ (occurrence: CZ)
  Receive Date: 20201211
  Receipt Date: 20210409
  Transmission Date: 20210717
  Serious: Yes (Other)
  Sender: FDA-Public Use
  Company Number: CZ-MYLANLABS-2020M1100331

PATIENT
  Age: 64 Year
  Sex: Male

DRUGS (18)
  1. 5 FLUOROURACIL                     /00098801/ [Suspect]
     Active Substance: FLUOROURACIL
     Dosage: UNK
     Dates: start: 2015, end: 2016
  2. BEVACIZUMAB. [Suspect]
     Active Substance: BEVACIZUMAB
     Indication: ADENOCARCINOMA OF COLON
     Dosage: UNK
     Dates: start: 2014, end: 2015
  3. CETUXIMAB. [Suspect]
     Active Substance: CETUXIMAB
     Indication: ADENOCARCINOMA OF COLON
     Dosage: UNK
     Dates: start: 2015, end: 2016
  4. LEUCOVORINE [Suspect]
     Active Substance: LEUCOVORIN
     Indication: ADENOCARCINOMA OF COLON
     Dosage: UNK
     Dates: start: 2014, end: 2015
  5. CALCIUM FOLINATE [Suspect]
     Active Substance: LEUCOVORIN CALCIUM
     Indication: ADENOCARCINOMA OF COLON
     Dosage: UNK
  6. 5 FLUOROURACIL                     /00098801/ [Suspect]
     Active Substance: FLUOROURACIL
     Indication: ADENOCARCINOMA OF COLON
     Dosage: UNK
     Dates: start: 2014, end: 2015
  7. FOLINIC ACID [Suspect]
     Active Substance: LEUCOVORIN
     Dosage: UNK
     Route: 065
  8. OXALIPLATIN. [Suspect]
     Active Substance: OXALIPLATIN
     Indication: ADENOCARCINOMA OF COLON
     Dosage: UNK UNK, CYCLE
     Route: 065
     Dates: start: 2014, end: 2015
  9. LEUCOVORINE [Suspect]
     Active Substance: LEUCOVORIN
     Dosage: UNK
     Dates: start: 2015, end: 2016
  10. CETUXIMAB. [Suspect]
     Active Substance: CETUXIMAB
     Dosage: UNK
  11. FOLINIC ACID [Suspect]
     Active Substance: LEUCOVORIN
     Indication: COLORECTAL CANCER METASTATIC
     Dosage: FOLFOX REGIMEN
     Route: 065
     Dates: start: 2014, end: 2015
  12. FOLINIC ACID [Suspect]
     Active Substance: LEUCOVORIN
     Dosage: FOLFIRI REGIMEN
     Route: 065
     Dates: start: 2015, end: 2016
  13. OXALIPLATIN. [Suspect]
     Active Substance: OXALIPLATIN
     Indication: COLORECTAL CANCER METASTATIC
     Dosage: UNK
  14. IRINOTECAN [Suspect]
     Active Substance: IRINOTECAN
     Indication: ADENOCARCINOMA OF COLON
     Dosage: FOLFIRI REGIMEN
     Route: 065
     Dates: start: 2015, end: 2016
  15. IRINOTECAN [Suspect]
     Active Substance: IRINOTECAN
     Indication: COLORECTAL CANCER METASTATIC
     Dosage: UNK
  16. BEVACIZUMAB. [Suspect]
     Active Substance: BEVACIZUMAB
     Dosage: UNK
  17. CAPECITABINE. [Suspect]
     Active Substance: CAPECITABINE
     Indication: COLORECTAL CANCER METASTATIC
     Dosage: UNK
     Route: 065
     Dates: start: 2014, end: 2014
  18. 5 FLUOROURACIL                     /00098801/ [Suspect]
     Active Substance: FLUOROURACIL
     Dosage: UNK

REACTIONS (10)
  - Disease progression [Unknown]
  - Alopecia [Unknown]
  - Drug hypersensitivity [Unknown]
  - Fatigue [Recovering/Resolving]
  - Weight decreased [Recovering/Resolving]
  - Skin toxicity [Unknown]
  - Diarrhoea [Unknown]
  - Toxicity to various agents [Unknown]
  - Neurotoxicity [Recovering/Resolving]
  - Hypersensitivity [Unknown]

NARRATIVE: CASE EVENT DATE: 2014
